FAERS Safety Report 18847995 (Version 2)
Quarter: 2021Q1

REPORT INFORMATION
  Report Type: Report from Study
  Country: FR (occurrence: FR)
  Receive Date: 20210204
  Receipt Date: 20210217
  Transmission Date: 20210419
  Serious: Yes (Other)
  Sender: FDA-Public Use
  Company Number: FR-DSJP-DSE-2021-102657

PATIENT
  Age: 55 Year
  Sex: Female
  Weight: 58 kg

DRUGS (8)
  1. METFORMINE                         /00082701/ [Concomitant]
     Active Substance: METFORMIN HYDROCHLORIDE
     Indication: DIABETES MELLITUS
     Dosage: 2 G, QD
     Route: 048
     Dates: start: 201908
  2. GAVISCON                           /00237601/ [Concomitant]
     Active Substance: ALUMINUM HYDROXIDE\MAGNESIUM CARBONATE
     Indication: GASTROOESOPHAGEAL REFLUX DISEASE
     Dosage: 1 DF, QD
     Dates: start: 20201002
  3. TRASTUZUMAB DERUXTECAN. [Suspect]
     Active Substance: TRASTUZUMAB DERUXTECAN
     Dosage: 255 MG, CYCLIC,  (ONCE PER 21 DAY CYCLE)
     Route: 042
     Dates: start: 20201223, end: 20201223
  4. DOLIPRAN                           /00020001/ [Concomitant]
     Active Substance: ACETAMINOPHEN
     Indication: BACK PAIN
     Dosage: 1 G, QD
     Route: 048
     Dates: start: 202001
  5. DOLIPRAN                           /00020001/ [Concomitant]
     Active Substance: ACETAMINOPHEN
     Indication: BREAST PAIN
  6. PRIMPERAN [Concomitant]
     Active Substance: METOCLOPRAMIDE HYDROCHLORIDE
     Indication: GASTROOESOPHAGEAL REFLUX DISEASE
     Dosage: 1 DF, QD
     Route: 048
     Dates: start: 20201002
  7. TRASTUZUMAB DERUXTECAN. [Suspect]
     Active Substance: TRASTUZUMAB DERUXTECAN
     Dosage: 255 MG, CYCLIC, CYCLE 2 ?11 (ONCE PER 21 DAY CYCLE)
     Route: 042
     Dates: start: 2020, end: 2020
  8. TRASTUZUMAB DERUXTECAN. [Suspect]
     Active Substance: TRASTUZUMAB DERUXTECAN
     Indication: HER2 POSITIVE BREAST CANCER
     Dosage: 255 MG, CYCLIC,  (ONCE PER 21 DAY CYCLE)
     Route: 042
     Dates: start: 20200520, end: 20200520

REACTIONS (1)
  - Electrocardiogram QT prolonged [Not Recovered/Not Resolved]

NARRATIVE: CASE EVENT DATE: 20210113
